FAERS Safety Report 24170565 (Version 1)
Quarter: 2024Q3

REPORT INFORMATION
  Report Type: Report from Study
  Country: US (occurrence: US)
  Receive Date: 20240803
  Receipt Date: 20240803
  Transmission Date: 20241017
  Serious: Yes (Hospitalization, Other)
  Sender: ABBVIE
  Company Number: US-ABBVIE-5863938

PATIENT
  Age: 38 Year
  Sex: Female

DRUGS (1)
  1. HUMIRA [Suspect]
     Active Substance: ADALIMUMAB
     Indication: Rheumatoid arthritis
     Dosage: CF?END DATE- 2024
     Route: 058
     Dates: start: 20240320

REACTIONS (5)
  - Haemorrhagic ovarian cyst [Unknown]
  - Suture rupture [Recovering/Resolving]
  - Abdominal abscess [Recovering/Resolving]
  - Loss of consciousness [Recovering/Resolving]
  - Incision site haemorrhage [Recovering/Resolving]

NARRATIVE: CASE EVENT DATE: 20240710
